FAERS Safety Report 4279950-5 (Version None)
Quarter: 2004Q1

REPORT INFORMATION
  Report Type: 
  Country: None (occurrence: None)
  Receive Date: 20040126
  Receipt Date: 20040114
  Transmission Date: 20041129
  Serious: Yes (Other)
  Sender: FDA-Public Use
  Company Number: 2004194605DE

PATIENT
  Age: 62 Year
  Sex: Female

DRUGS (2)
  1. EPIRUBICIN [Suspect]
     Indication: BREAST CANCER FEMALE
     Dosage: 155 MG QD IV
     Route: 042
     Dates: start: 20040107, end: 20040107
  2. CYCLOPHOSPHAMIDE [Concomitant]

REACTIONS (5)
  - CATHETER RELATED COMPLICATION [None]
  - ERYTHEMA [None]
  - EXTRAVASATION [None]
  - PAIN [None]
  - SWELLING [None]
